FAERS Safety Report 21038194 (Version 1)
Quarter: 2022Q3

REPORT INFORMATION
  Report Type: Spontaneous
  Country: CA (occurrence: CA)
  Receive Date: 20220704
  Receipt Date: 20220704
  Transmission Date: 20221027
  Serious: Yes (Other)
  Sender: FDA-Public Use
  Company Number: CA-HBP-2022CA026933

PATIENT
  Age: 2 Year
  Sex: Male

DRUGS (1)
  1. ALOXI [Suspect]
     Active Substance: PALONOSETRON HYDROCHLORIDE
     Indication: Product used for unknown indication
     Dosage: UNK, UNKNOWN
     Route: 042

REACTIONS (3)
  - Chest pain [Recovered/Resolved]
  - Cough [Recovered/Resolved]
  - Restlessness [Recovered/Resolved]
